FAERS Safety Report 8957802 (Version 4)
Quarter: 2013Q1

REPORT INFORMATION
  Report Type: Report from Study
  Country: FR (occurrence: FR)
  Receive Date: 20121211
  Receipt Date: 20130201
  Transmission Date: 20140127
  Serious: Yes (Hospitalization)
  Sender: FDA-Public Use
  Company Number: FR-ROCHE-1166923

PATIENT
  Age: 82 Year
  Sex: Female
  Weight: 59 kg

DRUGS (8)
  1. BEVACIZUMAB [Suspect]
     Indication: COLORECTAL CANCER METASTATIC
     Route: 065
     Dates: start: 20120214
  2. AMLOR [Concomitant]
     Indication: ANGINA PECTORIS
     Route: 048
     Dates: start: 2011
  3. LOVENOX [Concomitant]
     Indication: THROMBOSIS
     Route: 058
     Dates: start: 20120228
  4. TRIATEC [Concomitant]
     Indication: HYPERTENSION
     Route: 048
  5. VITAMIN B12 [Concomitant]
     Route: 048
     Dates: start: 2011
  6. ARIXTRA [Concomitant]
     Indication: VENOUS THROMBOSIS
     Route: 065
     Dates: start: 2011
  7. LEUCOVORIN [Concomitant]
  8. 5-FU [Concomitant]

REACTIONS (3)
  - Chills [Recovered/Resolved]
  - Pyrexia [Recovered/Resolved]
  - Vomiting [Recovered/Resolved]
